FAERS Safety Report 7768033-5 (Version None)
Quarter: 2011Q3

REPORT INFORMATION
  Report Type: 
  Country: None (occurrence: None)
  Receive Date: 20110922
  Receipt Date: 20110110
  Transmission Date: 20111222
  Serious: No
  Sender: FDA-Public Use
  Company Number: US-ASTRAZENECA-2010SE47970

PATIENT
  Age: 67 Year
  Sex: Male

DRUGS (18)
  1. OMEPRAZOLE [Concomitant]
  2. SEROQUEL XR [Suspect]
     Indication: ANXIETY
     Route: 048
     Dates: start: 20100801, end: 20100101
  3. SEROQUEL XR [Suspect]
     Indication: PARANOIA
     Route: 048
     Dates: start: 20100801, end: 20100101
  4. SEROQUEL XR [Suspect]
     Route: 048
     Dates: start: 20100901
  5. SEROQUEL XR [Suspect]
     Route: 048
     Dates: start: 20100901
  6. SEROQUEL XR [Suspect]
     Route: 048
     Dates: start: 20100901
  7. SEROQUEL XR [Suspect]
     Route: 048
     Dates: start: 20100901
  8. CRESTOR [Concomitant]
     Indication: HYPERCHOLESTEROLAEMIA
     Dosage: DAILY
     Route: 048
     Dates: start: 20050101
  9. SEROQUEL XR [Suspect]
     Indication: PANIC DISORDER
     Route: 048
     Dates: start: 20100801, end: 20100101
  10. LEXAPRO [Concomitant]
     Indication: ANXIETY
     Dosage: IN THE MORNIING
  11. BISOPROLOL FUMARATE AND HYDROCHLOROTHIAZIDE [Concomitant]
  12. ASPIRIN [Concomitant]
  13. SEROQUEL XR [Suspect]
     Route: 048
     Dates: start: 20100901
  14. FINASTERIDE [Concomitant]
  15. LUVOX [Concomitant]
     Indication: PANIC DISORDER
     Dates: start: 20100901
  16. SEROQUEL XR [Suspect]
     Route: 048
     Dates: start: 20100901
  17. METOPROLOL TARTRATE [Concomitant]
  18. LUVOX [Concomitant]
     Indication: ANXIETY
     Dates: start: 20100901

REACTIONS (5)
  - NERVOUSNESS [None]
  - ALOPECIA [None]
  - ANXIETY [None]
  - DRUG INEFFECTIVE [None]
  - INSOMNIA [None]
